FAERS Safety Report 4874555-7 (Version None)
Quarter: 2006Q1

REPORT INFORMATION
  Report Type: 
  Country: None (occurrence: None)
  Receive Date: 20060106
  Receipt Date: 20051228
  Transmission Date: 20060701
  Serious: Yes (Hospitalization)
  Sender: FDA-Public Use
  Company Number: FR-AMGEN-UK163046

PATIENT
  Age: 46 Year
  Sex: Male
  Weight: 80 kg

DRUGS (6)
  1. ARANESP [Suspect]
     Indication: ANAEMIA OF MALIGNANT DISEASE
     Route: 058
     Dates: start: 20051025, end: 20051203
  2. GARDENAL [Concomitant]
     Route: 048
     Dates: start: 20050625
  3. MEDROL [Concomitant]
     Route: 048
     Dates: start: 20051029
  4. URBANYL [Concomitant]
     Route: 048
     Dates: start: 20051029
  5. KEPPRA [Concomitant]
     Route: 048
     Dates: start: 20051029
  6. ESOMEPRAZOLE [Concomitant]
     Route: 048
     Dates: start: 20050701

REACTIONS (2)
  - ANAEMIA [None]
  - APLASIA PURE RED CELL [None]
